FAERS Safety Report 11021846 (Version 4)
Quarter: 2016Q4

REPORT INFORMATION
  Report Type: Report from Study
  Country: BE (occurrence: BE)
  Receive Date: 20150413
  Receipt Date: 20161111
  Transmission Date: 20170206
  Serious: Yes (Other)
  Sender: FDA-Public Use
  Company Number: PHHY2014BE071075

PATIENT
  Age: 39 Year
  Sex: Female

DRUGS (4)
  1. GILENYA [Suspect]
     Active Substance: FINGOLIMOD HYDROCHLORIDE
     Dosage: 0.5 MG, QD
     Dates: start: 20130909, end: 20150127
  2. GILENYA [Suspect]
     Active Substance: FINGOLIMOD HYDROCHLORIDE
     Dosage: 0.5 MG, QD
     Route: 048
     Dates: start: 20150207
  3. GILENYA [Suspect]
     Active Substance: FINGOLIMOD HYDROCHLORIDE
     Indication: MULTIPLE SCLEROSIS
     Dosage: 0.5 MG, QD
     Route: 048
     Dates: start: 20130808, end: 20130905
  4. GILENYA [Suspect]
     Active Substance: FINGOLIMOD HYDROCHLORIDE
     Dosage: 0.5 MG, QD
     Route: 048
     Dates: start: 20150128, end: 20150206

REACTIONS (6)
  - Lymphopenia [Recovered/Resolved]
  - Sinusitis [Recovered/Resolved]
  - Lymphopenia [Unknown]
  - Central nervous system lesion [Unknown]
  - Lymphopenia [Recovered/Resolved]
  - Tracheitis [Recovered/Resolved]

NARRATIVE: CASE EVENT DATE: 20130905
